FAERS Safety Report 8505920-4 (Version None)
Quarter: 2012Q3

REPORT INFORMATION
  Report Type: 
  Country: None (occurrence: None)
  Receive Date: 20120712
  Receipt Date: 20120703
  Transmission Date: 20120928
  Serious: Yes (Other)
  Sender: FDA-Public Use
  Company Number: US-ASTRAZENECA-2012SE45657

PATIENT
  Age: 42 Year
  Sex: Female

DRUGS (10)
  1. NEXIUM [Concomitant]
     Route: 048
  2. FLORINAL [Concomitant]
     Dosage: AS NEEDED
     Route: 048
  3. SINGULAIR [Concomitant]
     Route: 048
  4. LEVOTHYROXINE SODIUM [Concomitant]
     Route: 048
  5. VALTREX [Concomitant]
     Route: 048
  6. MULTI-VITAMIN [Concomitant]
     Route: 048
  7. ZYRTEC [Concomitant]
     Route: 048
  8. ZOLMITRIPTAN [Suspect]
     Route: 048
  9. TOPROL-XL [Concomitant]
     Route: 048
  10. ASTELIN [Concomitant]
     Route: 045

REACTIONS (1)
  - ANAPHYLACTIC REACTION [None]
